FAERS Safety Report 13511764 (Version 4)
Quarter: 2018Q1

REPORT INFORMATION
  Report Type: Spontaneous
  Country: FI (occurrence: FI)
  Receive Date: 20170504
  Receipt Date: 20180223
  Transmission Date: 20180508
  Serious: Yes (Disabling)
  Sender: FDA-Public Use
  Company Number: FI-009507513-1704FIN015266

PATIENT
  Age: 41 Year
  Sex: Female

DRUGS (1)
  1. NUVARING [Suspect]
     Active Substance: ETHINYL ESTRADIOL\ETONOGESTREL
     Indication: CONTRACEPTION
     Dosage: DEPOT RING, (STRENGHT: 0.120MG/0.015MG/24H)
     Route: 067
     Dates: start: 20170419, end: 20170427

REACTIONS (8)
  - Musculoskeletal discomfort [Recovering/Resolving]
  - Pain in extremity [Recovering/Resolving]
  - Dizziness [Recovering/Resolving]
  - Insomnia [Recovering/Resolving]
  - Irritability [Recovering/Resolving]
  - Vaginal haemorrhage [Recovering/Resolving]
  - Pelvic discomfort [Recovering/Resolving]
  - Hot flush [Recovering/Resolving]

NARRATIVE: CASE EVENT DATE: 20170425
